FAERS Safety Report 4935212-1 (Version None)
Quarter: 2006Q1

REPORT INFORMATION
  Report Type: 
  Country: None (occurrence: None)
  Receive Date: 20060302
  Receipt Date: 20060216
  Transmission Date: 20060701
  Serious: Yes (Hospitalization, Other)
  Sender: FDA-Public Use
  Company Number: US200511000652

PATIENT
  Age: 74 Year
  Sex: Female

DRUGS (10)
  1. FORTEO [Suspect]
     Indication: OSTEOPOROSIS
     Dates: start: 20050717, end: 20051214
  2. FORTEO [Suspect]
     Indication: OSTEOPOROSIS
     Dates: end: 20051214
  3. FORTEO PEN (FORTEO PEN) [Concomitant]
  4. CALCIUM CARBONATE (CALCIUM CARBONATE) [Concomitant]
  5. COLACE (DOCUSATE SODIUM) [Concomitant]
  6. VITAMINS-MINERALS THERAPEUTIC (VITAMINS-MINERALS THERAPEUTIC) [Concomitant]
  7. PREDNISONE TAB [Concomitant]
  8. FORTEO PEN (FORTEO PEN) [Concomitant]
  9. RANITIDINE [Concomitant]
  10. PREMARIN [Concomitant]

REACTIONS (9)
  - ANTINEUTROPHIL CYTOPLASMIC ANTIBODY POSITIVE [None]
  - DIZZINESS [None]
  - FAECES HARD [None]
  - PAIN [None]
  - PHARMACEUTICAL PRODUCT COMPLAINT [None]
  - POLYMYALGIA RHEUMATICA [None]
  - PROCTALGIA [None]
  - RIB FRACTURE [None]
  - VASCULITIS NECROTISING [None]
